FAERS Safety Report 9371084 (Version 5)
Quarter: 2013Q4

REPORT INFORMATION
  Report Type: Spontaneous
  Country: AR (occurrence: AR)
  Receive Date: 20130627
  Receipt Date: 20131121
  Transmission Date: 20140711
  Serious: Yes (Hospitalization, Other)
  Sender: FDA-Public Use
  Company Number: AR-AMGEN-ARGSP2013044913

PATIENT
  Age: 55 Year
  Sex: Female

DRUGS (8)
  1. ENBREL [Suspect]
     Indication: RHEUMATOID ARTHRITIS
     Dosage: 50 MG, WEEKLY
     Route: 058
     Dates: start: 20121015, end: 201306
  2. METFORMIN HYDROCHLORIDE [Concomitant]
     Indication: DIABETES MELLITUS
     Dosage: UNK
     Route: 048
  3. DELTISONA [Concomitant]
     Dosage: 40 MG, UNK
     Dates: start: 20131004
  4. CLONAZEPAM [Concomitant]
     Dosage: UNK
     Route: 048
  5. VALIUM [Concomitant]
     Dosage: UNK
  6. ACETAMINOPHEN [Concomitant]
     Dosage: UNK
  7. PREGABALIN [Concomitant]
     Dosage: UNK
  8. OMEPRAZOL                          /00661201/ [Concomitant]
     Dosage: UNK
     Route: 048

REACTIONS (1)
  - Spinal disorder [Not Recovered/Not Resolved]
